FAERS Safety Report 20582070 (Version 1)
Quarter: 2022Q1

REPORT INFORMATION
  Report Type: Spontaneous
  Country: US (occurrence: US)
  Receive Date: 20220311
  Receipt Date: 20220311
  Transmission Date: 20220423
  Serious: No
  Sender: FDA-Public Use
  Company Number: US-ORGANON-O2203USA000907

PATIENT
  Sex: Female

DRUGS (3)
  1. REMERON [Suspect]
     Active Substance: MIRTAZAPINE
     Indication: Progressive multifocal leukoencephalopathy
     Dosage: UNK
     Route: 048
  2. MEFLOQUINE [Concomitant]
     Active Substance: MEFLOQUINE
     Indication: Progressive multifocal leukoencephalopathy
     Dosage: UNK
  3. CIDOFOVIR [Concomitant]
     Active Substance: CIDOFOVIR
     Indication: Progressive multifocal leukoencephalopathy
     Dosage: UNK

REACTIONS (1)
  - Product use in unapproved indication [Unknown]
